FAERS Safety Report 14584506 (Version 1)
Quarter: 2018Q1

REPORT INFORMATION
  Report Type: Report from Study
  Country: US (occurrence: US)
  Receive Date: 20180301
  Receipt Date: 20180301
  Transmission Date: 20180509
  Serious: Yes (Other)
  Sender: FDA-Public Use
  Company Number: US-UNICHEM PHARMACEUTICALS (USA) INC-UCM201802-000048

PATIENT

DRUGS (1)
  1. LAMOTRIGINE. [Suspect]
     Active Substance: LAMOTRIGINE

REACTIONS (5)
  - Myoclonus [Unknown]
  - Rhabdomyolysis [Unknown]
  - Agitation [Unknown]
  - Somnolence [Unknown]
  - Toxicity to various agents [Unknown]
